FAERS Safety Report 9505726 (Version 1)
Quarter: 2013Q1

REPORT INFORMATION
  Report Type: Spontaneous
  Country: US (occurrence: None)
  Receive Date: 20130220
  Receipt Date: 20130220
  Transmission Date: 20140127
  Serious: No
  Sender: FDA-Public Use
  Company Number: 1000041076

PATIENT
  Age: 36 Year
  Sex: Female

DRUGS (1)
  1. VIIBRYD [Suspect]
     Indication: ANXIETY
     Route: 048
     Dates: start: 20121211

REACTIONS (4)
  - Dizziness [None]
  - Peripheral coldness [None]
  - Blood pressure increased [None]
  - Off label use [None]
